FAERS Safety Report 8853285 (Version 2)
Quarter: 2015Q3

REPORT INFORMATION
  Report Type: Report from Study
  Country: US (occurrence: US)
  Receive Date: 20121022
  Receipt Date: 20150817
  Transmission Date: 20151125
  Serious: Yes (Other)
  Sender: FDA-Public Use
  Company Number: US-ROCHE-1125389

PATIENT
  Age: 3 Year
  Sex: Male

DRUGS (5)
  1. NUTROPIN AQ [Suspect]
     Active Substance: SOMATROPIN
     Indication: GROWTH HORMONE DEFICIENCY
     Route: 058
  2. NUTROPIN AQ [Suspect]
     Active Substance: SOMATROPIN
     Route: 058
  3. NUTROPIN AQ [Suspect]
     Active Substance: SOMATROPIN
     Indication: HYPOPITUITARISM
     Route: 058
     Dates: start: 19980731
  4. NUTROPIN AQ [Suspect]
     Active Substance: SOMATROPIN
     Route: 058
  5. BACLOFEN. [Concomitant]
     Active Substance: BACLOFEN

REACTIONS (8)
  - Muscle spasticity [Unknown]
  - Decreased appetite [Recovered/Resolved]
  - Rhinorrhoea [Unknown]
  - Constipation [Unknown]
  - Liquid product physical issue [Unknown]
  - Seizure [Unknown]
  - Hypertonia [Unknown]
  - Erythema [Unknown]

NARRATIVE: CASE EVENT DATE: 19990317
